FAERS Safety Report 20676745 (Version 3)
Quarter: 2023Q1

REPORT INFORMATION
  Report Type: Spontaneous
  Country: CA (occurrence: CA)
  Receive Date: 20220406
  Receipt Date: 20230327
  Transmission Date: 20230418
  Serious: Yes (Other)
  Sender: FDA-Public Use
  Company Number: CA-CELLTRION INC.-2022CA001902

PATIENT

DRUGS (10)
  1. INFLECTRA [Suspect]
     Active Substance: INFLIXIMAB-DYYB
     Indication: Colitis ulcerative
     Dosage: 300 MG, EVERY 6 WEEKS
     Route: 042
     Dates: start: 20200622, end: 20210412
  2. INFLECTRA [Suspect]
     Active Substance: INFLIXIMAB-DYYB
     Dosage: 400 MG, EVERY 8 WEEKS
     Route: 042
     Dates: start: 20210517, end: 20211219
  3. INFLECTRA [Suspect]
     Active Substance: INFLIXIMAB-DYYB
     Dosage: 400 MG, EVERY 8 WEEKS
     Route: 042
     Dates: start: 20210517, end: 20221124
  4. INFLECTRA [Suspect]
     Active Substance: INFLIXIMAB-DYYB
     Dosage: 400 MG, EVERY 8 WEEK,  (INSTEAD OF 500 MG AS PER PRESCRIPTION)
     Route: 042
     Dates: start: 20220219
  5. INFLECTRA [Suspect]
     Active Substance: INFLIXIMAB-DYYB
     Dosage: 400 MG, EVERY 8 WEEK,  (INSTEAD OF 500 MG AS PER PRESCRIPTION)
     Route: 042
     Dates: start: 20230119
  6. INFLECTRA [Suspect]
     Active Substance: INFLIXIMAB-DYYB
     Dosage: 500MG EVERY 8 WEEKS
     Route: 042
     Dates: start: 20230316
  7. INFLECTRA [Suspect]
     Active Substance: INFLIXIMAB-DYYB
     Dosage: 500MG EVERY 8 WEEKS
     Route: 042
     Dates: start: 20230316
  8. ACETAMINOPHEN [Concomitant]
     Active Substance: ACETAMINOPHEN
     Indication: Premedication
     Dosage: 650 MG
     Dates: start: 20230316, end: 20230316
  9. DIPHENHYDRAMINE [Concomitant]
     Active Substance: DIPHENHYDRAMINE
     Indication: Premedication
     Dosage: 50 MG
     Dates: start: 20230316, end: 20230316
  10. HYDROCORTISONE [Concomitant]
     Active Substance: HYDROCORTISONE
     Dosage: 100 MG
     Dates: start: 20230316, end: 20230316

REACTIONS (8)
  - Fatigue [Not Recovered/Not Resolved]
  - Drug level decreased [Unknown]
  - Off label use [Unknown]
  - Drug level below therapeutic [Unknown]
  - Donor specific antibody present [Unknown]
  - Vision blurred [Unknown]
  - Loss of personal independence in daily activities [Not Recovered/Not Resolved]
  - Heart rate decreased [Unknown]

NARRATIVE: CASE EVENT DATE: 20200622
